FAERS Safety Report 7690937-2 (Version None)
Quarter: 2011Q3

REPORT INFORMATION
  Report Type: 
  Country: None (occurrence: None)
  Receive Date: 20110818
  Receipt Date: 20110805
  Transmission Date: 20111222
  Serious: No
  Sender: FDA-Public Use
  Company Number: US-B.I. PHARMACEUTICALS,INC./RIDGEFIELD-2011-BP-19383BP

PATIENT
  Age: 86 Year
  Sex: Female

DRUGS (4)
  1. POTASSIUM [Concomitant]
     Indication: BLOOD POTASSIUM DECREASED
     Route: 048
  2. PRADAXA [Suspect]
     Indication: THROMBOSIS PROPHYLAXIS
     Dosage: 300 MG
     Route: 048
     Dates: start: 20110501
  3. WATER PILL [Concomitant]
     Indication: OEDEMA PERIPHERAL
     Route: 048
  4. PROBIOTICS [Concomitant]
     Indication: DIARRHOEA
     Route: 048

REACTIONS (5)
  - EPISTAXIS [None]
  - EYE HAEMORRHAGE [None]
  - OEDEMA PERIPHERAL [None]
  - DIARRHOEA [None]
  - ABDOMINAL PAIN UPPER [None]
